FAERS Safety Report 15661416 (Version 1)
Quarter: 2018Q4

REPORT INFORMATION
  Report Type: Spontaneous
  Country: US (occurrence: US)
  Receive Date: 20181116
  Receipt Date: 20181116
  Transmission Date: 20190205
  Serious: No
  Sender: FDA-Public Use
  Company Number: None

PATIENT
  Age: 23 Year
  Sex: Male
  Weight: 60.3 kg

DRUGS (4)
  1. CARBOPLATIN (241240) [Suspect]
     Active Substance: CARBOPLATIN
     Dates: end: 20181103
  2. ETOPOSIDE (VP-16) [Suspect]
     Active Substance: ETOPOSIDE
     Dates: end: 20181103
  3. TAXOL [Concomitant]
     Active Substance: PACLITAXEL
     Dates: end: 20180809
  4. IFOSFAMIDE. [Concomitant]
     Active Substance: IFOSFAMIDE
     Dates: end: 20180811

REACTIONS (10)
  - Mallory-Weiss syndrome [None]
  - Neutropenia [None]
  - Malaise [None]
  - Platelet transfusion [None]
  - Pyrexia [None]
  - Tachycardia [None]
  - Abdominal pain [None]
  - Transfusion [None]
  - Thrombocytopenia [None]
  - Haematemesis [None]

NARRATIVE: CASE EVENT DATE: 20181112
